FAERS Safety Report 9858316 (Version 1)
Quarter: 2014Q1

REPORT INFORMATION
  Report Type: Spontaneous
  Country: US (occurrence: None)
  Receive Date: 20140129
  Receipt Date: 20140129
  Transmission Date: 20141002
  Serious: Yes (Hospitalization)
  Sender: FDA-Public Use
  Company Number: None

PATIENT
  Age: 30 Year
  Sex: Female
  Weight: 52.16 kg

DRUGS (1)
  1. EXJADE [Suspect]
     Route: 048
     Dates: start: 20131209, end: 20140127

REACTIONS (2)
  - Abdominal pain upper [None]
  - Vomiting [None]
